FAERS Safety Report 8525964-6 (Version None)
Quarter: 2012Q3

REPORT INFORMATION
  Report Type: 
  Country: None (occurrence: None)
  Receive Date: 20120720
  Receipt Date: 20120710
  Transmission Date: 20120928
  Serious: Yes (Other)
  Sender: FDA-Public Use
  Company Number: FR-BAXTER-2012BAX010847

PATIENT
  Sex: Male

DRUGS (8)
  1. PREDNISONE TAB [Concomitant]
  2. CYCLOPHOSPHAMIDE [Suspect]
     Route: 042
     Dates: start: 20120424, end: 20120606
  3. BACTRIM [Suspect]
     Indication: INFECTION PROPHYLAXIS
     Dosage: 800/160 MG THEN 200/40 MG
     Route: 048
     Dates: start: 20120418, end: 20120620
  4. ZOPICLONE [Concomitant]
  5. LEXOMIL [Concomitant]
  6. NEBIVOLOL HCL [Concomitant]
  7. STABLON [Concomitant]
  8. ASPIRIN [Concomitant]

REACTIONS (1)
  - CYTOLYTIC HEPATITIS [None]
